FAERS Safety Report 11262636 (Version 2)
Quarter: 2016Q1

REPORT INFORMATION
  Report Type: Report from Study
  Country: JP (occurrence: JP)
  Receive Date: 20150710
  Receipt Date: 20160311
  Transmission Date: 20160525
  Serious: Yes (Life-Threatening)
  Sender: FDA-Public Use
  Company Number: JP-EISAI MEDICAL RESEARCH-EC-2015-008434

PATIENT
  Age: 59 Year
  Sex: Female
  Weight: 48 kg

DRUGS (12)
  1. CELECOX [Concomitant]
     Active Substance: CELECOXIB
  2. LEVOTHYROXINE SODIUM HYDRATE [Concomitant]
  3. RANMARK [Concomitant]
     Active Substance: DENOSUMAB
  4. LENVIMA [Suspect]
     Active Substance: LENVATINIB
     Route: 048
     Dates: start: 20150727, end: 20150730
  5. NEXIUM [Concomitant]
     Active Substance: ESOMEPRAZOLE MAGNESIUM
  6. LENVIMA [Suspect]
     Active Substance: LENVATINIB
     Indication: PAPILLARY THYROID CANCER
     Route: 048
     Dates: start: 20150615, end: 20150629
  7. LENVIMA [Suspect]
     Active Substance: LENVATINIB
     Route: 048
     Dates: start: 20150731, end: 20150802
  8. DENOTAS [Concomitant]
     Active Substance: CALCIUM CARBONATE\CHOLECALCIFEROL\MAGNESIUM CARBONATE
  9. LENVIMA [Suspect]
     Active Substance: LENVATINIB
     Route: 048
     Dates: start: 20150810, end: 20150816
  10. HIRUDOID [Concomitant]
     Active Substance: GLYCOSAMINOGLYCANS
  11. LENVIMA [Suspect]
     Active Substance: LENVATINIB
     Route: 048
     Dates: start: 20150630, end: 20150706
  12. THYRADIN [Concomitant]
     Active Substance: LEVOTHYROXINE

REACTIONS (2)
  - Disseminated intravascular coagulation [Recovering/Resolving]
  - Sepsis [Recovering/Resolving]

NARRATIVE: CASE EVENT DATE: 20150707
